FAERS Safety Report 9709020 (Version 1)
Quarter: 2013Q4

REPORT INFORMATION
  Report Type: Spontaneous
  Country: GB (occurrence: None)
  Receive Date: 20131122
  Receipt Date: 20131122
  Transmission Date: 20140711
  Serious: Yes (Hospitalization, Other)
  Sender: FDA-Public Use
  Company Number: CL-534-2013

PATIENT
  Age: 40 Year
  Sex: Female

DRUGS (5)
  1. LEVOFLOXACIN [Suspect]
     Indication: MYCOBACTERIUM AVIUM COMPLEX INFECTION
     Dosage: 750MG, QD , ORAL THERAPY DATES UNK TO UNK, AROUND 2 WS
     Route: 048
  2. CLARITHROMYCIN [Suspect]
     Indication: MYCOBACTERIUM AVIUM COMPLEX INFECTION
     Dosage: 1000MG QD ORAL THERAPY DATES UNK TO UNK 3 WS
     Route: 048
  3. IMIPENEM /CILASTATIN, ETHAMBUTOL [Concomitant]
  4. RIFAMPICIN [Concomitant]
  5. AMIKACIN [Concomitant]

REACTIONS (2)
  - Acute generalised exanthematous pustulosis [None]
  - Off label use [None]
